FAERS Safety Report 15898653 (Version 2)
Quarter: 2019Q2

REPORT INFORMATION
  Report Type: Spontaneous
  Country: IT (occurrence: IT)
  Receive Date: 20190201
  Receipt Date: 20190527
  Transmission Date: 20190711
  Serious: Yes (Other)
  Sender: FDA-Public Use
  Company Number: IT-ACCORD-104694

PATIENT
  Age: 74 Year
  Sex: Female

DRUGS (5)
  1. ZOFRAN [Concomitant]
     Active Substance: ONDANSETRON HYDROCHLORIDE
     Route: 042
     Dates: start: 20180129, end: 20180129
  2. CARBOPLATIN AUROBINDO [Suspect]
     Active Substance: CARBOPLATIN
     Indication: CHEMOTHERAPY
     Route: 042
     Dates: start: 20180129, end: 20180129
  3. PACLITAXEL/PACLITAXEL LIPOSOME [Concomitant]
     Route: 042
     Dates: start: 20180129, end: 20180129
  4. TRIMETON [Concomitant]
     Active Substance: CHLORPHENIRAMINE MALEATE
     Route: 042
     Dates: start: 20180129, end: 20180129
  5. SOLDESAM [Concomitant]
     Active Substance: DEXAMETHASONE
     Route: 042
     Dates: start: 20180129, end: 20180129

REACTIONS (4)
  - Pruritus [Recovered/Resolved]
  - Hyperhidrosis [Recovered/Resolved]
  - Dyspnoea [Recovered/Resolved]
  - Hypersensitivity [Recovered/Resolved]

NARRATIVE: CASE EVENT DATE: 20180129
